FAERS Safety Report 16596208 (Version 1)
Quarter: 2019Q3

REPORT INFORMATION
  Report Type: Spontaneous
  Country: US (occurrence: US)
  Receive Date: 20190718
  Receipt Date: 20190718
  Transmission Date: 20191004
  Serious: Yes (Other)
  Sender: FDA-Public Use
  Company Number: None

PATIENT
  Age: 50 Year
  Sex: Male
  Weight: 103.5 kg

DRUGS (12)
  1. IBUPROFEN. [Concomitant]
     Active Substance: IBUPROFEN
  2. FENTANYL. [Concomitant]
     Active Substance: FENTANYL
  3. LYRICA [Suspect]
     Active Substance: PREGABALIN
     Indication: NEUROPATHY PERIPHERAL
     Route: 048
     Dates: start: 20151201, end: 20190705
  4. LISINOPRIL. [Concomitant]
     Active Substance: LISINOPRIL
  5. DULOXETINE. [Concomitant]
     Active Substance: DULOXETINE
  6. CEFDINIR. [Concomitant]
     Active Substance: CEFDINIR
  7. SELENIUM. [Concomitant]
     Active Substance: SELENIUM
  8. MORPHINE IR [Concomitant]
     Active Substance: MORPHINE
  9. .CA SUPPLEMENT [Concomitant]
  10. METOPROLOL. [Concomitant]
     Active Substance: METOPROLOL
  11. MG [Concomitant]
     Active Substance: MAGNESIUM
  12. VITAMIN D [Concomitant]
     Active Substance: VITAMIN D NOS

REACTIONS (5)
  - Paraesthesia [None]
  - Blood glucose increased [None]
  - Pain [None]
  - Dyskinesia [None]
  - Insomnia [None]

NARRATIVE: CASE EVENT DATE: 20151201
